FAERS Safety Report 6560540-6 (Version None)
Quarter: 2010Q1

REPORT INFORMATION
  Report Type: 
  Country: None (occurrence: None)
  Receive Date: 20100129
  Receipt Date: 20050314
  Transmission Date: 20100710
  Serious: No
  Sender: FDA-Public Use
  Company Number: US-ALLERGAN-200502090

PATIENT
  Age: 35 Year
  Sex: Female

DRUGS (2)
  1. BOTOX COSMETIC [Suspect]
     Indication: HYPERHIDROSIS
     Dosage: 200UNITS, PRN
     Route: 030
  2. BOTOX COSMETIC [Suspect]

REACTIONS (1)
  - DRUG INEFFECTIVE [None]
